FAERS Safety Report 11109025 (Version 1)
Quarter: 2015Q2

REPORT INFORMATION
  Report Type: Spontaneous
  Country: ES (occurrence: None)
  Receive Date: 20150511
  Receipt Date: 20150511
  Transmission Date: 20150821
  Serious: Yes (Other)
  Sender: FDA-Public Use
  Company Number: 20151440

PATIENT
  Age: 56 Year
  Sex: Female

DRUGS (6)
  1. ENBREL [Suspect]
     Active Substance: ETANERCEPT
     Indication: PSORIATIC ARTHROPATHY
     Route: 058
     Dates: start: 20140127
  2. EVISTA [Suspect]
     Active Substance: RALOXIFENE HYDROCHLORIDE
     Indication: OSTEOPOROSIS
     Dates: start: 2014, end: 2014
  3. FOSAVANCE / ALENDRONIC ACID, COLECALCIFEROL [Concomitant]
  4. METOJECT (METHOTREXATE DISODIUM) [Suspect]
     Active Substance: METHOTREXATE SODIUM
     Dosage: 1 X IN 1 WEEK
     Dates: end: 201407
  5. CONBRIZA [Suspect]
     Active Substance: BAZEDOXIFENE ACETATE
     Indication: OSTEOPOROSIS
     Dosage: TABLET-FILM-COATED
  6. BONESIL D FLAS / CALCIUM CARBONATE, COLECALCIFEROL [Concomitant]

REACTIONS (10)
  - Paraesthesia [None]
  - Dysphagia [None]
  - Psoriasis [None]
  - Lower respiratory tract inflammation [None]
  - Muscle spasms [None]
  - Wrong technique in drug usage process [None]
  - Injection site pain [None]
  - Inflammation [None]
  - Respiratory failure [None]
  - Muscular weakness [None]

NARRATIVE: CASE EVENT DATE: 2014
